FAERS Safety Report 6272062-0 (Version None)
Quarter: 2009Q3

REPORT INFORMATION
  Report Type: 
  Country: None (occurrence: None)
  Receive Date: 20090717
  Receipt Date: 20090709
  Transmission Date: 20100115
  Serious: Yes (Death)
  Sender: FDA-Public Use
  Company Number: A0797191A

PATIENT
  Age: 1 Year
  Sex: Male
  Weight: 12.7 kg

DRUGS (1)
  1. WELLBUTRIN XL [Suspect]
     Dosage: 12TAB SINGLE DOSE
     Route: 048
     Dates: start: 20070121, end: 20070121

REACTIONS (5)
  - ACCIDENTAL EXPOSURE [None]
  - CONTUSION [None]
  - CONVULSION [None]
  - PULMONARY OEDEMA [None]
  - THERAPEUTIC AGENT TOXICITY [None]
